FAERS Safety Report 13031673 (Version 3)
Quarter: 2019Q1

REPORT INFORMATION
  Report Type: Report from Study
  Country: JP (occurrence: JP)
  Receive Date: 20161215
  Receipt Date: 20190128
  Transmission Date: 20190417
  Serious: Yes (Life-Threatening, Hospitalization, Other)
  Sender: FDA-Public Use
  Company Number: JP-CELGENEUS-JPN-2015086178

PATIENT
  Age: 82 Year
  Sex: Male

DRUGS (17)
  1. POMALYST [Suspect]
     Active Substance: POMALIDOMIDE
     Dosage: 4 MG
     Route: 048
     Dates: start: 20151015, end: 20151103
  2. MIRCERA [Concomitant]
     Active Substance: METHOXY POLYETHYLENE GLYCOL-EPOETIN BETA
     Indication: PRODUCT USED FOR UNKNOWN INDICATION
     Route: 058
  3. BAKTAR [Concomitant]
     Active Substance: SULFAMETHOXAZOLE\TRIMETHOPRIM
     Indication: PROPHYLAXIS
     Route: 048
  4. MICARDIS [Concomitant]
     Active Substance: TELMISARTAN
     Indication: PRODUCT USED FOR UNKNOWN INDICATION
     Route: 048
  5. ZOLEDRONIC ACID HYDRATE [Concomitant]
     Active Substance: ZOLEDRONIC ACID
     Indication: PLASMA CELL MYELOMA RECURRENT
     Route: 041
  6. LENADEX [Suspect]
     Active Substance: DEXAMETHASONE ACETATE
     Dosage: 8 MG
     Route: 048
     Dates: start: 20150904, end: 20150918
  7. AMLODIPINE [Concomitant]
     Active Substance: AMLODIPINE BESYLATE
     Indication: PRODUCT USED FOR UNKNOWN INDICATION
     Route: 048
  8. LENADEX [Suspect]
     Active Substance: DEXAMETHASONE ACETATE
     Dosage: 8 MG
     Route: 048
     Dates: start: 20151016, end: 20151016
  9. POMALYST [Suspect]
     Active Substance: POMALIDOMIDE
     Dosage: 4 MG
     Route: 048
     Dates: start: 20150904, end: 20150924
  10. LENADEX [Suspect]
     Active Substance: DEXAMETHASONE ACETATE
     Indication: PLASMA CELL MYELOMA RECURRENT
     Dosage: 20 MG
     Route: 048
     Dates: start: 20150623, end: 20150714
  11. LEVOFLOXACIN HEMIHYDRATE [Concomitant]
     Active Substance: LEVOFLOXACIN
     Indication: PROPHYLAXIS
     Route: 048
  12. POMALYST [Suspect]
     Active Substance: POMALIDOMIDE
     Dosage: 4 MG
     Route: 048
     Dates: start: 20150730, end: 20150819
  13. VICCLOX [Concomitant]
     Active Substance: ACYCLOVIR SODIUM
     Indication: PROPHYLAXIS
     Route: 048
  14. ITRIZOLE [Concomitant]
     Active Substance: ITRACONAZOLE
     Indication: PROPHYLAXIS
     Route: 048
  15. POMALYST [Suspect]
     Active Substance: POMALIDOMIDE
     Indication: PLASMA CELL MYELOMA RECURRENT
     Dosage: 4 MG
     Route: 048
     Dates: start: 20150623, end: 20150713
  16. LENADEX [Suspect]
     Active Substance: DEXAMETHASONE ACETATE
     Dosage: 8 MG
     Route: 048
     Dates: start: 20150730, end: 20150814
  17. BAYASPIRIN [Concomitant]
     Active Substance: ASPIRIN
     Indication: PROPHYLAXIS
     Dosage: 100 MG
     Route: 048

REACTIONS (6)
  - Osteomyelitis [Recovered/Resolved]
  - Pneumonia [Recovered/Resolved]
  - Febrile neutropenia [Recovered/Resolved]
  - Bone marrow failure [Recovered/Resolved]
  - Infection [Recovered/Resolved]
  - Blood potassium decreased [Unknown]

NARRATIVE: CASE EVENT DATE: 20150713
